FAERS Safety Report 24965933 (Version 2)
Quarter: 2025Q1

REPORT INFORMATION
  Report Type: Spontaneous
  Country: US (occurrence: US)
  Receive Date: 20250213
  Receipt Date: 20250214
  Transmission Date: 20250409
  Serious: Yes (Hospitalization, Other)
  Sender: PFIZER
  Company Number: US-MLMSERVICE-20250130-PI384275-00329-1

PATIENT
  Age: 2 Year
  Sex: Female

DRUGS (3)
  1. VANCOMYCIN HYDROCHLORIDE [Suspect]
     Active Substance: VANCOMYCIN HYDROCHLORIDE
  2. LEVETIRACETAM [Concomitant]
     Active Substance: LEVETIRACETAM
  3. ACYCLOVIR [Concomitant]
     Active Substance: ACYCLOVIR

REACTIONS (2)
  - Diffuse cutaneous mastocytosis [Recovered/Resolved]
  - Dermatitis bullous [Recovered/Resolved]
